FAERS Safety Report 12927608 (Version 1)
Quarter: 2016Q4

REPORT INFORMATION
  Report Type: Report from Study
  Country: US (occurrence: US)
  Receive Date: 20161109
  Receipt Date: 20161109
  Transmission Date: 20170207
  Serious: Yes (Hospitalization, Other)
  Sender: FDA-Public Use
  Company Number: US-ANTARES PHARMA, INC.-2016-LIT-ME-0325

PATIENT
  Age: 15 Year
  Sex: Male

DRUGS (2)
  1. METHOTREXATE. [Suspect]
     Active Substance: METHOTREXATE
     Dosage: 5 G/M2, OTHER
     Route: 042
  2. METHOTREXATE. [Suspect]
     Active Substance: METHOTREXATE
     Dosage: 5 G/M2, OTHER
     Route: 037

REACTIONS (7)
  - Pallor [Recovering/Resolving]
  - Dysarthria [Recovering/Resolving]
  - Anxiety [Recovering/Resolving]
  - Hemiparesis [Recovering/Resolving]
  - Facial paralysis [Recovering/Resolving]
  - Neurotoxicity [Recovering/Resolving]
  - Facial paresis [Recovering/Resolving]
